FAERS Safety Report 5283703-9 (Version None)
Quarter: 2007Q2

REPORT INFORMATION
  Report Type: 
  Country: None (occurrence: None)
  Receive Date: 20070402
  Receipt Date: 20070312
  Transmission Date: 20071010
  Serious: Yes (Hospitalization)
  Sender: FDA-Public Use
  Company Number: US-SANOFI-SYNTHELABO-A03200702165

PATIENT
  Sex: Male

DRUGS (4)
  1. PROZAC [Concomitant]
     Dosage: UNK
     Route: 065
  2. SYNTHROID [Concomitant]
     Dosage: UNK
     Route: 065
  3. AMBIEN [Suspect]
     Indication: INSOMNIA
     Dosage: UNK
     Route: 048
     Dates: start: 20020201, end: 20020517
  4. NEURONTIN [Concomitant]
     Dosage: UNK
     Route: 065

REACTIONS (4)
  - AMNESIA [None]
  - HOSPITALISATION [None]
  - IMPAIRED DRIVING ABILITY [None]
  - ROAD TRAFFIC ACCIDENT [None]
